FAERS Safety Report 11440801 (Version 1)
Quarter: 2015Q3

REPORT INFORMATION
  Report Type: Spontaneous
  Country: US (occurrence: None)
  Receive Date: 20150831
  Receipt Date: 20150831
  Transmission Date: 20151125
  Serious: Yes (Hospitalization)
  Sender: FDA-Public Use
  Company Number: None

PATIENT
  Age: 29 Year
  Sex: Female
  Weight: 56.7 kg

DRUGS (1)
  1. INVOKANA [Suspect]
     Active Substance: CANAGLIFLOZIN
     Indication: DIABETES MELLITUS MANAGEMENT

REACTIONS (3)
  - Diabetic ketoacidosis [None]
  - Nausea [None]
  - Vomiting [None]

NARRATIVE: CASE EVENT DATE: 20150828
